FAERS Safety Report 8172840-7 (Version None)
Quarter: 2012Q1

REPORT INFORMATION
  Report Type: 
  Country: None (occurrence: None)
  Receive Date: 20120223
  Receipt Date: 20120208
  Transmission Date: 20120608
  Serious: Yes (Other)
  Sender: FDA-Public Use
  Company Number: 2012P1004065

PATIENT
  Age: 69 Year
  Sex: Male
  Weight: 81.6475 kg

DRUGS (2)
  1. LIVALO [Concomitant]
  2. LOSARTAN POTASSIUM [Suspect]
     Indication: HYPERTENSION
     Dosage: 100 MG;QD;PO
     Route: 048
     Dates: start: 20120118, end: 20120201

REACTIONS (5)
  - HEADACHE [None]
  - VISUAL IMPAIRMENT [None]
  - IMPAIRED DRIVING ABILITY [None]
  - PRODUCT SUBSTITUTION ISSUE [None]
  - BLOOD PRESSURE INCREASED [None]
